FAERS Safety Report 12664087 (Version 1)
Quarter: 2016Q3

REPORT INFORMATION
  Report Type: Spontaneous
  Country: US (occurrence: US)
  Receive Date: 20160818
  Receipt Date: 20160818
  Transmission Date: 20161109
  Serious: No
  Sender: FDA-Public Use
  Company Number: US-GLAXOSMITHKLINE-CHPA2016US001206

PATIENT
  Age: 43 Year
  Sex: Female

DRUGS (1)
  1. TRANSDERM SCOP [Suspect]
     Active Substance: SCOPOLAMINE
     Indication: MOTION SICKNESS
     Dosage: 1 DF, UNK
     Route: 062
     Dates: start: 20150113

REACTIONS (11)
  - Visual impairment [Recovering/Resolving]
  - Vision blurred [Recovering/Resolving]
  - Incorrect drug administration duration [Unknown]
  - Retching [Recovered/Resolved]
  - Dizziness [Recovered/Resolved]
  - Application site scab [Recovering/Resolving]
  - Balance disorder [Recovered/Resolved]
  - Dry mouth [Recovered/Resolved]
  - Application site pain [Recovered/Resolved]
  - Nausea [Recovered/Resolved]
  - Mydriasis [Recovering/Resolving]
